FAERS Safety Report 8793098 (Version 1)
Quarter: 2012Q4

REPORT INFORMATION
  Report Type: 
  Country: US (occurrence: US)
  Receive Date: 20120917
  Receipt Date: 20120917
  Transmission Date: 20130627
  Serious: No
  Sender: FDA-Public Use
  Company Number: US-BAYER-2012-096445

PATIENT
  Age: 79 Year
  Sex: Male
  Weight: 85.26 kg

DRUGS (3)
  1. ALEVE CAPLET/TABLET,MIDOL EXTENDED RELIEF CAPLET [Suspect]
     Indication: MUSCULOSKELETAL PAIN
     Dosage: 2 DF, BID
     Route: 048
     Dates: start: 201207
  2. SYNTHROID [Concomitant]
  3. MULTIVITAMIN [Concomitant]

REACTIONS (1)
  - No adverse event [None]
